FAERS Safety Report 11755033 (Version 1)
Quarter: 2015Q4

REPORT INFORMATION
  Report Type: Spontaneous
  Country: US (occurrence: US)
  Receive Date: 20151119
  Receipt Date: 20151119
  Transmission Date: 20160304
  Serious: Yes (Other)
  Sender: FDA-Public Use
  Company Number: US-PFIZER INC-2015390752

PATIENT
  Age: 36 Year
  Sex: Male
  Weight: 194 kg

DRUGS (1)
  1. VIAGRA [Suspect]
     Active Substance: SILDENAFIL CITRATE
     Indication: ERECTILE DYSFUNCTION
     Dosage: UNK
     Dates: start: 201511

REACTIONS (3)
  - Erection increased [Unknown]
  - Genital hypoaesthesia [Unknown]
  - Skin discolouration [Unknown]

NARRATIVE: CASE EVENT DATE: 201511
